FAERS Safety Report 14032956 (Version 2)
Quarter: 2017Q4

REPORT INFORMATION
  Report Type: Spontaneous
  Country: DK (occurrence: DK)
  Receive Date: 20171002
  Receipt Date: 20171106
  Transmission Date: 20180321
  Serious: Yes (Other)
  Sender: FDA-Public Use
  Company Number: DK-TEVA-809210ACC

PATIENT
  Sex: Male
  Weight: 105 kg

DRUGS (4)
  1. FURIX RETARD [Concomitant]
     Active Substance: FUROSEMIDE
     Indication: DIURETIC THERAPY
     Dosage: 60 MILLIGRAM DAILY; STRENGTH: 60 MG
     Route: 048
  2. APROVEL [Concomitant]
     Active Substance: IRBESARTAN
     Indication: HYPERTENSION
     Dosage: 300 MILLIGRAM DAILY; STRENGTH: 150 MG.
     Route: 048
     Dates: start: 1996
  3. SPARKAL [Concomitant]
     Active Substance: AMILORIDE HYDROCHLORIDE
     Indication: PRODUCT USED FOR UNKNOWN INDICATION
     Dosage: 1 DOSAGE FORMS DAILY; STRENGTH: 50 + 5 MG
     Route: 048
  4. AMLODIPIN ^ACTAVIS^ [Suspect]
     Active Substance: AMLODIPINE BESYLATE
     Indication: HYPERTENSION
     Dosage: 5 MILLIGRAM DAILY; STRENGTH: 5 MG
     Route: 048
     Dates: start: 1992, end: 20170602

REACTIONS (1)
  - Polyneuropathy [Recovering/Resolving]

NARRATIVE: CASE EVENT DATE: 2006
